FAERS Safety Report 9293869 (Version 1)
Quarter: 2013Q1

REPORT INFORMATION
  Report Type: Spontaneous
  Country: US (occurrence: None)
  Receive Date: 20121217
  Receipt Date: 20121217
  Transmission Date: 20140127
  Serious: Yes (Other)
  Sender: FDA-Public Use
  Company Number: 1000038375

PATIENT
  Sex: Male

DRUGS (6)
  1. NAMENDA [Suspect]
     Indication: PSYCHOTHERAPY
     Route: 048
     Dates: start: 20120814, end: 20120820
  2. DEPO-TESTOSTERONE(TESTOSTERONE CIPIONATE)(TESTOSTERONE CIPIONATE) [Concomitant]
  3. JANUVIA(SITAGLIPTIN PHOSPHATE) (SITAGLIPTIN PHOSPHATE) [Concomitant]
  4. SYNTHROID (LEVOTHYROXINE SODIUM) (LEVOTHYROXINE SODIUM) [Concomitant]
  5. DEPLIN(CALCIUM LEVOMEFOLATE) (CALCIUM LEVOMEFOLATEO [Concomitant]
  6. ADDERALL (OBETROL)(OBETROL) [Concomitant]

REACTIONS (7)
  - Pneumonia [None]
  - Bronchitis [None]
  - Hypertension [None]
  - Nausea [None]
  - Dizziness [None]
  - Constipation [None]
  - Off label use [None]
